FAERS Safety Report 16700726 (Version 1)
Quarter: 2019Q3

REPORT INFORMATION
  Report Type: Spontaneous
  Country: GB (occurrence: GB)
  Receive Date: 20190814
  Receipt Date: 20190814
  Transmission Date: 20191004
  Serious: Yes (Other)
  Sender: FDA-Public Use
  Company Number: GB-IBIGEN-2019.07028

PATIENT
  Age: 59 Year
  Sex: Male
  Weight: 62 kg

DRUGS (18)
  1. SALBUTAMOL [Concomitant]
     Active Substance: ALBUTEROL
     Dosage: ?
     Route: 055
     Dates: start: 20181121
  2. QUININE [Concomitant]
     Active Substance: QUININE
     Dosage: USE AS DIRECTED ?????
     Dates: start: 20181231
  3. FLUTICASONE FUROATE [Concomitant]
     Active Substance: FLUTICASONE FUROATE
     Dosage: TWO SPRAYS INTO EACH NOSTRIL ONCE A DAY.
     Route: 045
     Dates: start: 20190528
  4. SPIRONOLACTONE. [Concomitant]
     Active Substance: SPIRONOLACTONE
     Dosage: EACH MORNING
     Dates: start: 20190623
  5. PREDNISOLONE. [Concomitant]
     Active Substance: PREDNISOLONE
     Dosage: AS ADVISED BY CHEST CONSULTANT
     Dates: start: 20181121
  6. CARBOCISTEINE [Concomitant]
     Active Substance: CARBOCYSTEINE
     Dosage: 1-2 TO BE TAKEN THREE DAILY
     Dates: start: 20181121
  7. FOSTAIR [Concomitant]
     Active Substance: BECLOMETHASONE\FORMOTEROL
     Dates: start: 20181121
  8. GLYCERYL TRINITRATE [Concomitant]
     Active Substance: NITROGLYCERIN
     Dosage: 1 - 2 DOSES UNDER TONGUE?????
     Route: 060
     Dates: start: 20181121
  9. PIPERACILLIN AND TAZOBACTAM [Suspect]
     Active Substance: PIPERACILLIN SODIUM\TAZOBACTAM SODIUM
     Dosage: PIPERACILLIN 2G/TAZOBACTAM 250MG
     Dates: start: 20190719
  10. BETNESOL [Concomitant]
     Dosage: FOR 7 DAYS
     Dates: start: 20181231, end: 20190623
  11. ACCRETE D3 [Concomitant]
     Active Substance: CALCIUM CARBONATE\CHOLECALCIFEROL
     Dates: start: 20181121
  12. NUTRITIONAL SUPPLEMENT [Concomitant]
     Active Substance: DIETARY SUPPLEMENT
     Dosage: USE AS DIRECTED
     Dates: start: 20190715, end: 20190716
  13. NUTRITIONAL SUPPLEMENT [Concomitant]
     Active Substance: DIETARY SUPPLEMENT
     Dosage: USE AS DIRECTED
     Dates: start: 20190515, end: 20190516
  14. SODIUM CHLORIDE. [Concomitant]
     Active Substance: SODIUM CHLORIDE
     Dosage: USE AS DIRECTED
     Dates: start: 20181121
  15. AZITHROMYCIN ANHYDROUS. [Concomitant]
     Active Substance: AZITHROMYCIN ANHYDROUS
     Dates: start: 20181121
  16. FUROSEMIDE. [Concomitant]
     Active Substance: FUROSEMIDE
     Dosage: EACH MORNING
     Dates: start: 20190623
  17. PARACETAMOL [Concomitant]
     Active Substance: ACETAMINOPHEN
     Dosage: TAKE 1 OR 2 FOUR TIMES A DAY ??????
     Dates: start: 20181121
  18. LANSOPRAZOLE. [Concomitant]
     Active Substance: LANSOPRAZOLE
     Dates: start: 20181121

REACTIONS (1)
  - Swelling face [Recovered/Resolved]

NARRATIVE: CASE EVENT DATE: 20190719
